FAERS Safety Report 5654433-6 (Version None)
Quarter: 2008Q1

REPORT INFORMATION
  Report Type: 
  Country: None (occurrence: None)
  Receive Date: 20080305
  Receipt Date: 20080219
  Transmission Date: 20080703
  Serious: Yes (Hospitalization)
  Sender: FDA-Public Use
  Company Number: 2008020043

PATIENT
  Age: 2 Year
  Sex: Female

DRUGS (7)
  1. FELBATOL [Suspect]
     Indication: LENNOX-GASTAUT SYNDROME
     Dosage: (400MG AM AND 200 MG PM), ORAL
     Route: 048
     Dates: start: 20070813
  2. CALCIUM LIQUID [Concomitant]
  3. LEVOTHROID [Concomitant]
  4. VIGABATRIN [Concomitant]
  5. MIRALAX [Concomitant]
  6. TYLENOL (CAPLET) [Concomitant]
  7. SUGAR FREE VITAMIN [Concomitant]

REACTIONS (9)
  - DEHYDRATION [None]
  - GASTROINTESTINAL INFECTION [None]
  - KETOACIDOSIS [None]
  - PNEUMONIA [None]
  - RAYNAUD'S PHENOMENON [None]
  - RESPIRATORY SYNCYTIAL VIRUS INFECTION [None]
  - THYROID DISORDER [None]
  - VIRAL INFECTION [None]
  - VOMITING [None]
